FAERS Safety Report 4711062-6 (Version None)
Quarter: 2005Q3

REPORT INFORMATION
  Report Type: 
  Country: None (occurrence: None)
  Receive Date: 20050708
  Receipt Date: 20050627
  Transmission Date: 20060218
  Serious: Yes (Hospitalization)
  Sender: FDA-Public Use
  Company Number: 2005092040

PATIENT
  Age: 60 Year
  Sex: Male
  Weight: 60 kg

DRUGS (3)
  1. CLINDAMYCIN HYDROCHLORIDE SOLUTION, STERILE (CLINDAMYCIN PHOSPHATE) [Suspect]
     Indication: NECROTISING FASCIITIS
     Dosage: 1800 MG (600 MG, TID), INTRAVENOUS
     Route: 042
     Dates: start: 20050607, end: 20050611
  2. PIPERACILLIN/ TAZOBACTAM (PIPERACILLIN, TAZOBACTAM) [Suspect]
     Indication: NECROTISING FASCIITIS
     Dosage: 18 GRAM (4.5 GRAM, QID INTERVAL: 6 HRS), INTRAVENOUS
     Route: 042
     Dates: start: 20050606, end: 20050611
  3. LINEZOLID (LINEZOLID) [Concomitant]

REACTIONS (5)
  - HAEMOGLOBIN DECREASED [None]
  - HEPATITIS CHOLESTATIC [None]
  - JAUNDICE CHOLESTATIC [None]
  - SEPSIS [None]
  - WHITE BLOOD CELL COUNT INCREASED [None]
